FAERS Safety Report 15262388 (Version 7)
Quarter: 2018Q4

REPORT INFORMATION
  Report Type: Report from Study
  Country: US (occurrence: US)
  Receive Date: 20180809
  Receipt Date: 20181113
  Transmission Date: 20190204
  Serious: Yes (Hospitalization, Other)
  Sender: FDA-Public Use
  Company Number: US-GILEAD-2018-0350755

PATIENT
  Sex: Female
  Weight: 85.6 kg

DRUGS (30)
  1. CHLORHEXIDINE [Concomitant]
     Active Substance: CHLORHEXIDINE
  2. FILGRASTIM [Concomitant]
     Active Substance: FILGRASTIM
  3. MEROPENEM. [Concomitant]
     Active Substance: MEROPENEM
  4. ONDANSETRON [Concomitant]
     Active Substance: ONDANSETRON
  5. POTASSIUM PHOSPHATE                /00493501/ [Concomitant]
     Active Substance: POTASSIUM PHOSPHATE, DIBASIC
  6. FOLIC ACID. [Concomitant]
     Active Substance: FOLIC ACID
  7. PREVIDENT 5000 ENAMEL PROTECT [Concomitant]
     Active Substance: POTASSIUM NITRATE\SODIUM FLUORIDE
  8. METOPROLOL. [Concomitant]
     Active Substance: METOPROLOL
  9. PROCHLORPERAZINE. [Concomitant]
     Active Substance: PROCHLORPERAZINE
  10. CYCLOPHOSPHAMIDE. [Suspect]
     Active Substance: CYCLOPHOSPHAMIDE
     Indication: BONE MARROW CONDITIONING REGIMEN
     Dosage: 980 MG, QD
     Route: 042
     Dates: start: 20180705, end: 20180707
  11. MESNA. [Suspect]
     Active Substance: MESNA
     Indication: PROPHYLAXIS
     Dosage: 980 MG, QD X 3 DAYS
     Route: 042
     Dates: start: 20180705, end: 20180707
  12. ACETAMINOPHEN. [Concomitant]
     Active Substance: ACETAMINOPHEN
  13. FAMOTIDINE. [Concomitant]
     Active Substance: FAMOTIDINE
  14. MEPERIDINE                         /00016301/ [Concomitant]
     Active Substance: MEPERIDINE
  15. SIMETHICONE (DIMETHICONE) [Concomitant]
     Active Substance: DIMETHICONE
  16. CHOLECALCIFEROL [Concomitant]
     Active Substance: CHOLECALCIFEROL
  17. FLUDARABINE [Suspect]
     Active Substance: FLUDARABINE PHOSPHATE
     Indication: BONE MARROW CONDITIONING REGIMEN
     Dosage: 58.75 MG, QD
     Route: 042
     Dates: start: 20180705, end: 20180707
  18. IPRATROPIUM [Concomitant]
     Active Substance: IPRATROPIUM
  19. DOCUSATE SODIUM + SENNA [Concomitant]
     Active Substance: DOCUSATE SODIUM\SENNOSIDE A\SENNOSIDE B
  20. SILTUXIMAB [Concomitant]
     Active Substance: SILTUXIMAB
  21. PERIDEX [Concomitant]
     Active Substance: CHLORHEXIDINE GLUCONATE
  22. BACTRIM [Concomitant]
     Active Substance: SULFAMETHOXAZOLE\TRIMETHOPRIM
  23. LOVENOX [Suspect]
     Active Substance: ENOXAPARIN SODIUM
     Indication: PULMONARY EMBOLISM
     Dosage: UNK
     Route: 065
  24. DIPHENHYDRAMINE. [Concomitant]
     Active Substance: DIPHENHYDRAMINE
  25. LEVETIRACETAM. [Concomitant]
     Active Substance: LEVETIRACETAM
  26. POLYETHYLENE GLYCOL [Concomitant]
     Active Substance: POLYETHYLENE GLYCOLS
  27. AXICABTAGENE CILOLEUCEL [Suspect]
     Active Substance: AXICABTAGENE CILOLEUCEL
     Indication: NON-HODGKIN^S LYMPHOMA UNSPECIFIED HISTOLOGY INDOLENT
     Dosage: 2 X 10^6 ANTICD19 CELLS/KG, ONCE
     Route: 042
     Dates: start: 20180710, end: 20180710
  28. ALLOPURINOL. [Concomitant]
     Active Substance: ALLOPURINOL
  29. ACYCLOVIR                          /00587301/ [Concomitant]
     Active Substance: ACYCLOVIR
  30. VALACYCLOVIR                       /01269701/ [Concomitant]
     Active Substance: VALACYCLOVIR HYDROCHLORIDE

REACTIONS (11)
  - Muscular weakness [Recovered/Resolved]
  - Retroperitoneal haemorrhage [Recovered/Resolved]
  - Urinary tract infection [Recovering/Resolving]
  - Pulmonary oedema [Recovered/Resolved]
  - Pulmonary oedema [Recovered/Resolved]
  - Cytokine release syndrome [Recovering/Resolving]
  - Atrial fibrillation [Recovered/Resolved]
  - Pyrexia [Recovering/Resolving]
  - Pulmonary embolism [Recovered/Resolved with Sequelae]
  - Ejection fraction decreased [Not Recovered/Not Resolved]
  - Tachycardia [Recovering/Resolving]

NARRATIVE: CASE EVENT DATE: 20180711
